FAERS Safety Report 24193297 (Version 2)
Quarter: 2024Q3

REPORT INFORMATION
  Report Type: Spontaneous
  Country: US (occurrence: US)
  Receive Date: 20240809
  Receipt Date: 20240820
  Transmission Date: 20241017
  Serious: No
  Sender: NOVARTIS
  Company Number: US-002147023-NVSC2024US162024

PATIENT
  Sex: Female

DRUGS (1)
  1. MEKINIST [Suspect]
     Active Substance: TRAMETINIB DIMETHYL SULFOXIDE
     Indication: Ovarian cancer
     Dosage: 2 MG, QD (BY MOUTH)
     Route: 048
     Dates: start: 202407

REACTIONS (4)
  - Oedema [Unknown]
  - Swelling [Unknown]
  - Rash [Unknown]
  - Pruritus [Unknown]
